FAERS Safety Report 13276596 (Version 1)
Quarter: 2017Q1

REPORT INFORMATION
  Report Type: Report from Study
  Country: US (occurrence: US)
  Receive Date: 20170228
  Receipt Date: 20170228
  Transmission Date: 20170428
  Serious: Yes (Other)
  Sender: FDA-Public Use
  Company Number: US-ASTELLAS-2017US007475

PATIENT
  Sex: Female

DRUGS (3)
  1. ERLOTINIB [Suspect]
     Active Substance: ERLOTINIB
     Indication: NON-SMALL CELL LUNG CANCER
     Route: 048
     Dates: start: 201606
  2. ARMOUR THYROID [Concomitant]
     Active Substance: THYROID, PORCINE
     Indication: HYPOTHYROIDISM
     Dosage: UNK UNK, IN THE MORNING
     Route: 065
  3. METOPROLOL. [Concomitant]
     Active Substance: METOPROLOL
     Indication: HYPERTENSION
     Dosage: UNK UNK, IN THE MORNING ANF AT NIGHT
     Route: 065

REACTIONS (17)
  - Vertigo positional [Not Recovered/Not Resolved]
  - Fatigue [Not Recovered/Not Resolved]
  - Feeling abnormal [Recovering/Resolving]
  - Mental disorder [Unknown]
  - Memory impairment [Unknown]
  - Rhinorrhoea [Recovering/Resolving]
  - Dermatitis acneiform [Not Recovered/Not Resolved]
  - Alopecia [Not Recovered/Not Resolved]
  - Disability [Unknown]
  - Asthenopia [Unknown]
  - Dizziness [Recovering/Resolving]
  - Blood pressure increased [Not Recovered/Not Resolved]
  - Epistaxis [Unknown]
  - Rash [Not Recovered/Not Resolved]
  - Back pain [Not Recovered/Not Resolved]
  - Alopecia [Recovered/Resolved]
  - Cough [Unknown]
